FAERS Safety Report 4524471-5 (Version None)
Quarter: 2004Q4

REPORT INFORMATION
  Report Type: 
  Country: None (occurrence: None)
  Receive Date: 20041117
  Receipt Date: 20031118
  Transmission Date: 20050328
  Serious: Yes (Other)
  Sender: FDA-Public Use
  Company Number: US-JNJFOC-20031000577

PATIENT
  Age: 54 Year
  Sex: Female
  Weight: 58.9676 kg

DRUGS (4)
  1. LEVAQUIN [Suspect]
     Dosage: SEE IMAGE
     Route: 048
     Dates: start: 20030408, end: 20030409
  2. LEVAQUIN [Suspect]
     Dosage: SEE IMAGE
     Route: 048
     Dates: start: 20021120
  3. CLARINEX [Concomitant]
  4. TYLENOL [Concomitant]

REACTIONS (1)
  - ANAPHYLACTIC REACTION [None]
